FAERS Safety Report 5481757-8 (Version None)
Quarter: 2007Q3

REPORT INFORMATION
  Report Type: 
  Country: None (occurrence: None)
  Receive Date: 20070917
  Receipt Date: 20061113
  Transmission Date: 20080115
  Serious: Yes (Other)
  Sender: FDA-Public Use
  Company Number: S06-USA-04776-01

PATIENT
  Age: 40 Year
  Sex: Female

DRUGS (2)
  1. CELEXA [Suspect]
     Indication: DEPRESSION
     Dates: start: 20061106, end: 20061108
  2. OTHER MEDICATIONS (NOS) [Concomitant]

REACTIONS (1)
  - EXTRAPYRAMIDAL DISORDER [None]
